FAERS Safety Report 7032312-X (Version None)
Quarter: 2010Q4

REPORT INFORMATION
  Report Type: 
  Country: None (occurrence: None)
  Receive Date: 20101007
  Receipt Date: 20100927
  Transmission Date: 20110411
  Serious: Yes (Hospitalization, Other)
  Sender: FDA-Public Use
  Company Number: US-BAXTER-2010BH024678

PATIENT
  Age: 10 Month
  Sex: Male

DRUGS (8)
  1. GAMMAGARD LIQUID [Suspect]
     Indication: ORGAN TRANSPLANT
     Route: 042
     Dates: start: 20100905, end: 20100907
  2. ANTI-THYMOCYTE GLOBULIN NOS [Suspect]
     Indication: TRANSPLANT
     Route: 065
  3. CYCLOSPORINE [Concomitant]
     Indication: TRANSPLANT REJECTION
     Route: 048
  4. MYCOPHENOLATE MOFETIL [Concomitant]
     Indication: TRANSPLANT REJECTION
     Route: 048
  5. KEPPRA [Concomitant]
     Indication: CONVULSION
  6. ENOXAPARIN SODIUM [Concomitant]
     Indication: ANTICOAGULANT THERAPY
     Route: 058
  7. CAPTOPRIL [Concomitant]
     Indication: BLOOD PRESSURE
  8. PREDNISOLONE [Concomitant]
     Indication: TRANSPLANT REJECTION

REACTIONS (1)
  - ANTI-ERYTHROCYTE ANTIBODY POSITIVE [None]
